FAERS Safety Report 23056414 (Version 1)
Quarter: 2023Q4

REPORT INFORMATION
  Report Type: Spontaneous
  Country: AU (occurrence: AU)
  Receive Date: 20231011
  Receipt Date: 20231011
  Transmission Date: 20240109
  Serious: Yes (Other)
  Sender: FDA-Public Use
  Company Number: AU-GILEAD-2023-0647042

PATIENT

DRUGS (1)
  1. YESCARTA [Suspect]
     Active Substance: AXICABTAGENE CILOLEUCEL
     Indication: Diffuse large B-cell lymphoma
     Dosage: UNK
     Route: 065
     Dates: start: 20231004, end: 20231004

REACTIONS (3)
  - Cytokine release syndrome [Recovering/Resolving]
  - Neutropenia [Unknown]
  - Influenza A virus test positive [Unknown]

NARRATIVE: CASE EVENT DATE: 20231009
